FAERS Safety Report 7086487-7 (Version None)
Quarter: 2010Q4

REPORT INFORMATION
  Report Type: 
  Country: None (occurrence: None)
  Receive Date: 20101105
  Receipt Date: 20101026
  Transmission Date: 20110411
  Serious: Yes (Hospitalization, Other)
  Sender: FDA-Public Use
  Company Number: US-CELGENEUS-163-21880-10092556

PATIENT
  Sex: Female

DRUGS (18)
  1. REVLIMID [Suspect]
     Indication: MULTIPLE MYELOMA
     Route: 048
     Dates: start: 20091001
  2. DECADRON [Concomitant]
     Indication: MULTIPLE MYELOMA
     Route: 065
     Dates: start: 20091001, end: 20100501
  3. NORVASC [Concomitant]
     Route: 048
  4. TRICOR [Concomitant]
     Route: 048
  5. GLUCOPHAGE [Concomitant]
     Route: 048
  6. TRAMADOL HCL [Concomitant]
     Route: 048
  7. SIMVASTATIN [Concomitant]
     Route: 048
  8. ASPIRIN [Concomitant]
     Route: 048
  9. HYDRALAZINE [Concomitant]
     Route: 048
  10. PRILOSEC [Concomitant]
     Route: 048
  11. MAG OXIDE [Concomitant]
     Route: 048
  12. MULTI-VITAMIN [Concomitant]
     Route: 048
  13. MIRALAX [Concomitant]
     Dosage: 3350 NF
     Route: 065
  14. BENICAR [Concomitant]
     Route: 048
  15. PERCOCET [Concomitant]
     Dosage: 10-325MG
     Route: 048
  16. NIACIN [Concomitant]
     Route: 048
  17. CLONIDINE [Concomitant]
     Route: 065
  18. COLACE [Concomitant]
     Route: 048

REACTIONS (3)
  - ATRIOVENTRICULAR BLOCK [None]
  - GOUT [None]
  - NIGHT SWEATS [None]
